FAERS Safety Report 8365848-X (Version None)
Quarter: 2012Q2

REPORT INFORMATION
  Report Type: 
  Country: None (occurrence: None)
  Receive Date: 20120515
  Receipt Date: 20120508
  Transmission Date: 20120825
  Serious: Yes (Death)
  Sender: FDA-Public Use
  Company Number: 2010001952

PATIENT
  Age: 71 Year
  Sex: Female

DRUGS (2)
  1. TARCEVA [Suspect]
     Indication: LUNG NEOPLASM MALIGNANT
     Dosage: 150 MG, UID/QD, ORAL, 100 MG, UID/QD, ORAL
     Route: 048
     Dates: start: 20100426
  2. TARCEVA [Suspect]
     Indication: LUNG NEOPLASM MALIGNANT
     Dosage: 150 MG, UID/QD, ORAL, 100 MG, UID/QD, ORAL
     Route: 048
     Dates: start: 20100423

REACTIONS (5)
  - DIARRHOEA [None]
  - SWOLLEN TONGUE [None]
  - PRURITUS GENERALISED [None]
  - TONGUE DISCOLOURATION [None]
  - NAUSEA [None]
